FAERS Safety Report 7624060-X (Version None)
Quarter: 2011Q3

REPORT INFORMATION
  Report Type: 
  Country: None (occurrence: None)
  Receive Date: 20110720
  Receipt Date: 20110707
  Transmission Date: 20111222
  Serious: Yes (Other)
  Sender: FDA-Public Use
  Company Number: PHHY2011AU60443

PATIENT
  Age: 46 Year
  Sex: Male

DRUGS (2)
  1. CLOZAPINE [Suspect]
     Dosage: 400 MG, UNK
  2. CLOZAPINE [Suspect]
     Dosage: 750 MG, UNK

REACTIONS (8)
  - CONSTIPATION [None]
  - ANXIETY [None]
  - PROSTATOMEGALY [None]
  - AGITATION [None]
  - OBSESSIVE-COMPULSIVE DISORDER [None]
  - ANTIPSYCHOTIC DRUG LEVEL INCREASED [None]
  - BIPOLAR DISORDER [None]
  - ANOSOGNOSIA [None]
